FAERS Safety Report 8120600-5 (Version None)
Quarter: 2012Q1

REPORT INFORMATION
  Report Type: 
  Country: None (occurrence: None)
  Receive Date: 20120207
  Receipt Date: 20120127
  Transmission Date: 20120608
  Serious: Yes (Hospitalization, Other)
  Sender: FDA-Public Use
  Company Number: FR-PFIZER INC-K201001027

PATIENT
  Age: 80 Year
  Sex: Male

DRUGS (14)
  1. ALDACTONE [Suspect]
     Indication: CARDIAC FAILURE
     Dosage: 25 MG, 1X/DAY
     Route: 048
     Dates: end: 20100708
  2. ATORVASTATIN [Concomitant]
     Dosage: 20 MG, UNK
  3. PREVISCAN [Concomitant]
     Dosage: UNK, 3/4 TABLET QD
  4. PREVISCAN [Concomitant]
     Dosage: 20 MG, UNK
  5. CLARITIN [Concomitant]
     Dosage: 10 MG, UNK
  6. LACTULOSE [Concomitant]
     Dosage: 2 DF, UNK
  7. ACETAMINOPHEN [Concomitant]
     Dosage: UNK
  8. BISOPROLOL FUMARATE [Suspect]
     Indication: CARDIAC FAILURE
     Dosage: 2.5 MG, 1X/DAY
     Route: 048
     Dates: start: 20100401, end: 20100101
  9. IVABRADINE [Suspect]
     Indication: ANGINA PECTORIS
     Dosage: 5 MG, 2X/DAY
     Route: 048
     Dates: start: 20100401, end: 20100708
  10. FUROSEMIDE [Concomitant]
     Dosage: 40 MG, UNK
  11. RAMIPRIL [Suspect]
     Indication: HYPERTENSION
     Dosage: 5 MG, 1X/DAY
     Route: 048
  12. BISOPROLOL FUMARATE [Suspect]
     Dosage: 7.5 MG, 1X/DAY
  13. GALENIC /FLUTICASONE/SALMETEROL/ [Concomitant]
     Dosage: 250 UG, UNK
  14. TIOTROPIUM BROMIDE [Concomitant]
     Dosage: UNK

REACTIONS (6)
  - ATRIOVENTRICULAR BLOCK COMPLETE [None]
  - FATIGUE [None]
  - CHEST PAIN [None]
  - DYSPNOEA [None]
  - RENAL FAILURE [None]
  - HYPERKALAEMIA [None]
